FAERS Safety Report 17344367 (Version 1)
Quarter: 2020Q1

REPORT INFORMATION
  Report Type: Spontaneous
  Country: US (occurrence: US)
  Receive Date: 20200129
  Receipt Date: 20200129
  Transmission Date: 20200409
  Serious: No
  Sender: FDA-Public Use
  Company Number: US-ALLERGAN-1930141US

PATIENT
  Age: 50 Year
  Sex: Female

DRUGS (8)
  1. BOTOX COSMETIC [Suspect]
     Active Substance: ONABOTULINUMTOXINA
     Dosage: UNK, SINGLE
     Dates: start: 20190722, end: 20190722
  2. BOTOX COSMETIC [Suspect]
     Active Substance: ONABOTULINUMTOXINA
     Dosage: 24 UNITS, SINGLE
     Dates: start: 20181221, end: 20181221
  3. BOTOX COSMETIC [Suspect]
     Active Substance: ONABOTULINUMTOXINA
     Dosage: UNK, SINGLE
     Dates: start: 20181221, end: 20181221
  4. BOTOX COSMETIC [Suspect]
     Active Substance: ONABOTULINUMTOXINA
     Indication: SKIN WRINKLING
     Dosage: 24 UNITS, SINGLE
     Dates: start: 20190722, end: 20190722
  5. BOTOX COSMETIC [Suspect]
     Active Substance: ONABOTULINUMTOXINA
     Indication: SKIN WRINKLING
     Dosage: UNK, SINGLE
     Dates: start: 20190722, end: 20190722
  6. BOTOX COSMETIC [Suspect]
     Active Substance: ONABOTULINUMTOXINA
     Dosage: UNK, SINGLE
  7. BOTOX COSMETIC [Suspect]
     Active Substance: ONABOTULINUMTOXINA
     Dosage: UNK, SINGLE
     Dates: start: 20181221, end: 20181221
  8. VITAMIN E [Concomitant]
     Active Substance: .ALPHA.-TOCOPHEROL
     Route: 048

REACTIONS (5)
  - Injection site swelling [Not Recovered/Not Resolved]
  - Injection site swelling [Unknown]
  - Injection site bruising [Unknown]
  - Injection site bruising [Not Recovered/Not Resolved]
  - Injection site bruising [Unknown]

NARRATIVE: CASE EVENT DATE: 20181221
